FAERS Safety Report 4734676-6 (Version None)
Quarter: 2005Q3

REPORT INFORMATION
  Report Type: 
  Country: None (occurrence: None)
  Receive Date: 20050721
  Receipt Date: 20050423
  Transmission Date: 20060218
  Serious: No
  Sender: FDA-Public Use
  Company Number: 2005SP000317

PATIENT
  Age: 45 Year
  Sex: Female

DRUGS (4)
  1. LUNESTA [Suspect]
     Indication: INSOMNIA
     Dosage: ORAL
     Route: 048
  2. DURAGESIC-100 [Concomitant]
  3. LEXAPRO [Concomitant]
  4. CYMBALTA [Concomitant]

REACTIONS (1)
  - DYSGEUSIA [None]
